FAERS Safety Report 11112296 (Version 3)
Quarter: 2015Q4

REPORT INFORMATION
  Report Type: Spontaneous
  Country: US (occurrence: US)
  Receive Date: 20150514
  Receipt Date: 20151120
  Transmission Date: 20160304
  Serious: Yes (Hospitalization)
  Sender: FDA-Public Use
  Company Number: US-PFIZER INC-2015159019

PATIENT
  Age: 82 Year
  Sex: Female

DRUGS (17)
  1. CARVEDILOL. [Concomitant]
     Active Substance: CARVEDILOL
     Indication: CARDIAC DISORDER
     Dosage: 6.25 MG, 2X/DAY
  2. LYRICA [Suspect]
     Active Substance: PREGABALIN
     Indication: PAIN IN EXTREMITY
  3. LYRICA [Suspect]
     Active Substance: PREGABALIN
     Indication: SPINAL COLUMN STENOSIS
  4. LYRICA [Suspect]
     Active Substance: PREGABALIN
     Indication: PAIN
  5. FENOFIBRATE. [Concomitant]
     Active Substance: FENOFIBRATE
     Indication: BLOOD CHOLESTEROL ABNORMAL
     Dosage: 54 MG, DAILY (1 TAB DAILY AM FOR CHOLESTEROL AFTER BREAKFAST)
  6. DORZOLAMIDE HCL [Concomitant]
     Active Substance: DORZOLAMIDE HYDROCHLORIDE
     Dosage: ONE DROP IN EACH EYE 2 X A DAY
  7. PREDNISOLONE ACETATE. [Concomitant]
     Active Substance: PREDNISOLONE ACETATE
     Dosage: UNK, 1X/DAY
  8. BRIMONIDINE [Concomitant]
     Active Substance: BRIMONIDINE TARTRATE
     Indication: EYE DISORDER
     Dosage: 0.2%, ONE DROP IN EACH EYE IN AM
  9. LYRICA [Suspect]
     Active Substance: PREGABALIN
     Indication: FIBROMYALGIA
     Dosage: 75 MG, 2X/DAY
     Dates: start: 20150601, end: 20150611
  10. LYRICA [Suspect]
     Active Substance: PREGABALIN
     Indication: BACK PAIN
  11. ISOSORBIDE MONONITRATE. [Concomitant]
     Active Substance: ISOSORBIDE MONONITRATE
     Indication: CARDIAC DISORDER
     Dosage: 30 MG, 1X/DAY (ONE TAB DAILY IN AM AFTER BREAKFAST)
  12. OMEPRAZOLE. [Concomitant]
     Active Substance: OMEPRAZOLE
     Indication: ABDOMINAL DISCOMFORT
     Dosage: 40 MG, 2X/DAY (ONE CAP IN AM BEFORE BREAKFAST AND ONE CAP 4PM)
  13. ATORVASTATIN [Concomitant]
     Active Substance: ATORVASTATIN
     Indication: CARDIAC DISORDER
     Dosage: 20 ONE CAP AFTER DINNER
  14. LATANOPROST. [Concomitant]
     Active Substance: LATANOPROST
     Dosage: ONE DROP IN EACH EYE IN PM
  15. DETROL LA [Concomitant]
     Active Substance: TOLTERODINE TARTRATE
     Indication: BLADDER DISORDER
     Dosage: 4 MG, 1X/DAY (ONE CAP IN MORN/BEFORE BREAK)
  16. DICYCLOMINE HCL [Concomitant]
     Active Substance: DICYCLOMINE HYDROCHLORIDE
     Indication: ABDOMINAL DISCOMFORT
     Dosage: 10 MG, 2X/DAY (ONE CAP IN AM BEFORE BREAKFAST AND ONE CAP 4 PM)
  17. ATIVAN [Concomitant]
     Active Substance: LORAZEPAM
     Dosage: 1.0 MG, 2X/DAY

REACTIONS (6)
  - Joint swelling [Unknown]
  - Hunger [Recovered/Resolved]
  - Drug effect incomplete [Not Recovered/Not Resolved]
  - Peripheral swelling [Unknown]
  - Weight increased [Recovered/Resolved]
  - Pain [Not Recovered/Not Resolved]
